FAERS Safety Report 11849225 (Version 1)
Quarter: 2015Q4

REPORT INFORMATION
  Report Type: Spontaneous
  Country: GH (occurrence: GH)
  Receive Date: 20151218
  Receipt Date: 20151218
  Transmission Date: 20160305
  Serious: Yes (Death, Other)
  Sender: FDA-Public Use
  Company Number: GH-ROCHE-1678984

PATIENT
  Sex: Female

DRUGS (1)
  1. XELODA [Suspect]
     Active Substance: CAPECITABINE
     Indication: GASTRIC CANCER
     Dosage: DOSAGE WAS NOT SPECIFIED
     Route: 065

REACTIONS (5)
  - Vomiting [Unknown]
  - Platelet count decreased [Unknown]
  - Diarrhoea [Unknown]
  - Death [Fatal]
  - White blood cell count decreased [Unknown]
